FAERS Safety Report 13359146 (Version 1)
Quarter: 2017Q1

REPORT INFORMATION
  Report Type: Spontaneous
  Country: US (occurrence: US)
  Receive Date: 20170321
  Receipt Date: 20170321
  Transmission Date: 20170429
  Serious: No
  Sender: FDA-Public Use
  Company Number: None

PATIENT
  Age: 27 Year
  Sex: Male
  Weight: 67.5 kg

DRUGS (7)
  1. TAURINE [Concomitant]
     Active Substance: TAURINE
  2. BCAAS [Concomitant]
  3. PROSCAR [Suspect]
     Active Substance: FINASTERIDE
     Indication: BENIGN PROSTATIC HYPERPLASIA
  4. CREATINE [Concomitant]
     Active Substance: CREATINE
  5. BETAINE [Concomitant]
     Active Substance: BETAINE
  6. MULTIVITAMIN [Concomitant]
     Active Substance: VITAMINS
  7. BETA-ALANINE [Concomitant]
     Active Substance: DIETARY SUPPLEMENT

REACTIONS (4)
  - Loss of libido [None]
  - Anxiety [None]
  - Anhedonia [None]
  - Depression [None]

NARRATIVE: CASE EVENT DATE: 20170314
